FAERS Safety Report 17140245 (Version 4)
Quarter: 2020Q1

REPORT INFORMATION
  Report Type: Report from Study
  Country: US (occurrence: US)
  Receive Date: 20191211
  Receipt Date: 20200117
  Transmission Date: 20200409
  Serious: Yes (Death, Other)
  Sender: FDA-Public Use
  Company Number: NVSC2019US066068

PATIENT
  Age: 83 Year
  Sex: Male
  Weight: 67.7 kg

DRUGS (1)
  1. ENTRESTO [Suspect]
     Active Substance: SACUBITRIL\VALSARTAN
     Indication: CARDIAC FAILURE CHRONIC
     Dosage: 1.5 DF (24/26 MG, 1/2 IN AM AND 1 IN PM)
     Route: 048

REACTIONS (15)
  - Acute kidney injury [Recovering/Resolving]
  - Atrial fibrillation [Unknown]
  - Chronic obstructive pulmonary disease [Unknown]
  - Wrong technique in product usage process [Unknown]
  - Confusional state [Unknown]
  - Hyperkalaemia [Recovering/Resolving]
  - Fatigue [Unknown]
  - Hypotension [Unknown]
  - Respiratory failure [Fatal]
  - Cardiomyopathy [Unknown]
  - Underdose [Unknown]
  - Lethargy [Unknown]
  - Arrhythmia [Unknown]
  - Dehydration [Unknown]
  - Dyspnoea [Unknown]

NARRATIVE: CASE EVENT DATE: 20190731
